FAERS Safety Report 14648055 (Version 1)
Quarter: 2018Q1

REPORT INFORMATION
  Report Type: Spontaneous
  Country: DK (occurrence: DK)
  Receive Date: 20180316
  Receipt Date: 20180316
  Transmission Date: 20180509
  Serious: Yes (Hospitalization)
  Sender: FDA-Public Use
  Company Number: DK-TEVA-2018-DK-867331

PATIENT
  Age: 62 Year
  Sex: Female

DRUGS (8)
  1. PREDNISOLONE ^ACTAVIS^ [Suspect]
     Active Substance: PREDNISOLONE
     Indication: PHARYNGEAL OEDEMA
     Dosage: STRENGTH: 25 MG.
     Route: 048
  2. FOLIMET [Concomitant]
     Indication: VITAMIN SUPPLEMENTATION
     Dosage: STRENGTH: 5 MG. DOSAGE: 5 MG DAILY, EXCEPT DAYS WHEN METHOTREXATE IS GIVEN
     Route: 048
  3. MORFIN ^ALTERNOVA^ [Concomitant]
     Active Substance: MORPHINE HYDROCHLORIDE
     Indication: PROCEDURAL PAIN
     Dosage: STRENGTH: 10 MG.
     Route: 048
  4. METHOTREXATE ^ORION^ [Concomitant]
     Indication: RHEUMATOID ARTHRITIS
     Dosage: DOSE: 0,6 ML = 15 MG LAST GIVEN ON 18DEC2017, 25DEC2017 AND 01JAN2018. STRENGTH: 25 MG/ML
  5. KLAXIMOL [Suspect]
     Active Substance: AMOXICILLIN\CLAVULANATE POTASSIUM
     Indication: INFECTION PROPHYLAXIS
     Dosage: STRENGTH: 500 MG+125 MG.
     Route: 048
  6. PAMOL [Concomitant]
     Active Substance: ACETAMINOPHEN
     Indication: PROCEDURAL PAIN
     Dosage: STRENGTH: 500 MG.
     Route: 048
  7. ROXIMSTAD [Suspect]
     Active Substance: ROXITHROMYCIN
     Indication: INFECTION PROPHYLAXIS
     Dosage: STRENGTH: 150 MG.
     Route: 048
  8. BONYL [Suspect]
     Active Substance: NAPROXEN
     Indication: PROCEDURAL PAIN
     Dosage: STRENGTH: 500 MG.
     Route: 048

REACTIONS (6)
  - Chills [Recovered/Resolved]
  - Nausea [Recovered/Resolved]
  - Vomiting [Recovered/Resolved]
  - Oral fungal infection [Recovered/Resolved]
  - Decreased appetite [Recovered/Resolved]
  - Abdominal pain [Recovered/Resolved]
